FAERS Safety Report 15469105 (Version 1)
Quarter: 2018Q4

REPORT INFORMATION
  Report Type: Spontaneous
  Country: JP (occurrence: JP)
  Receive Date: 20181005
  Receipt Date: 20181005
  Transmission Date: 20190205
  Serious: Yes (Other)
  Sender: FDA-Public Use
  Company Number: JP-MYLANLABS-2018M1072266

PATIENT
  Age: 35 Year
  Sex: Male

DRUGS (2)
  1. MINOCYCLINE [Suspect]
     Active Substance: MINOCYCLINE\MINOCYCLINE HYDROCHLORIDE
     Indication: LEPROMATOUS LEPROSY
     Route: 065
  2. DIAPHENYLSULFONE [Concomitant]
     Indication: LEPROMATOUS LEPROSY
     Route: 065

REACTIONS (4)
  - Facial paresis [Unknown]
  - Type 1 lepra reaction [Unknown]
  - Skin depigmentation [Recovering/Resolving]
  - Melanocytic naevus [Recovering/Resolving]
